FAERS Safety Report 9903758 (Version 2)
Quarter: 2014Q1

REPORT INFORMATION
  Report Type: Spontaneous
  Country: DE (occurrence: DE)
  Receive Date: 20140218
  Receipt Date: 20140228
  Transmission Date: 20141002
  Serious: Yes (Hospitalization, Other)
  Sender: FDA-Public Use
  Company Number: DE-AMGEN-DEUSP2014010310

PATIENT
  Age: 89 Year
  Sex: Female

DRUGS (6)
  1. PROLIA [Suspect]
     Indication: OSTEOPOROSIS POSTMENOPAUSAL
     Dosage: 60 MG, Q6MO
     Route: 058
     Dates: start: 20110929, end: 20130311
  2. OMEP                               /00661201/ [Concomitant]
     Indication: GASTROOESOPHAGEAL REFLUX DISEASE
     Dosage: 20 MG, 24H
     Route: 048
     Dates: start: 20090416
  3. NEBILET [Concomitant]
     Indication: HYPERTENSION
     Dosage: 5 MG, 24H
     Route: 048
     Dates: start: 20091026
  4. NOVAMINSULFON [Concomitant]
     Indication: PAIN
     Dosage: 500 MG, 8H
     Route: 048
     Dates: start: 20090416, end: 20140101
  5. CALCIUM W/VITAMIN D3 [Concomitant]
     Indication: OSTEOPOROSIS
     Dosage: 600 MG, 24H
     Route: 048
     Dates: start: 20090416
  6. ATACAND [Concomitant]
     Indication: HYPERTENSION
     Dosage: 16 MG, 24H
     Route: 048
     Dates: start: 20090903

REACTIONS (2)
  - Lumbar vertebral fracture [Not Recovered/Not Resolved]
  - Pneumonia [Unknown]
